FAERS Safety Report 9898458 (Version 1)
Quarter: 2014Q1

REPORT INFORMATION
  Report Type: Spontaneous
  Country: US (occurrence: US)
  Receive Date: 20140214
  Receipt Date: 20140214
  Transmission Date: 20141002
  Serious: No
  Sender: FDA-Public Use
  Company Number: US-BAYER-2014-023380

PATIENT
  Age: 77 Year
  Sex: Male
  Weight: 94 kg

DRUGS (1)
  1. ALEVE CAPLET [Suspect]
     Indication: MYALGIA
     Dosage: EVERY 12 HOURS
     Route: 048
     Dates: start: 20140209, end: 20140210

REACTIONS (2)
  - Epistaxis [Recovered/Resolved]
  - Expired drug administered [None]
